FAERS Safety Report 13196355 (Version 4)
Quarter: 2017Q2

REPORT INFORMATION
  Report Type: Spontaneous
  Country: US (occurrence: US)
  Receive Date: 20170208
  Receipt Date: 20170516
  Transmission Date: 20170830
  Serious: No
  Sender: FDA-Public Use
  Company Number: US-PFIZER INC-2017054006

PATIENT
  Age: 84 Year
  Sex: Female
  Weight: 68 kg

DRUGS (3)
  1. ADVIL [Suspect]
     Active Substance: IBUPROFEN
     Indication: PAIN IN EXTREMITY
  2. ADVIL [Suspect]
     Active Substance: IBUPROFEN
     Indication: PAIN
     Dosage: 2 DF, SINGLE (440 UNSPECIFIED UNITS ONCE)
     Route: 048
     Dates: start: 20170202, end: 20170202
  3. ADVIL [Suspect]
     Active Substance: IBUPROFEN
     Indication: BACK PAIN
     Dosage: 2 DF, SINGLE (440 UNSPECIFIED UNITS ONCE)
     Route: 048
     Dates: start: 20170202, end: 20170202

REACTIONS (1)
  - Pollakiuria [Recovered/Resolved]

NARRATIVE: CASE EVENT DATE: 20170203
